FAERS Safety Report 5808648-4 (Version None)
Quarter: 2008Q3

REPORT INFORMATION
  Report Type: 
  Country: None (occurrence: None)
  Receive Date: 20080714
  Receipt Date: 20080709
  Transmission Date: 20090109
  Serious: Yes (Other)
  Sender: FDA-Public Use
  Company Number: BE-BRISTOL-MYERS SQUIBB COMPANY-14256085

PATIENT
  Age: 62 Year
  Sex: Female
  Weight: 90 kg

DRUGS (5)
  1. AMIKACIN SULFATE [Interacting]
     Indication: GENERAL ANAESTHESIA
     Dosage: 1 GRAM OVER 30 MINUTES
  2. ROCURONIUM BROMIDE [Interacting]
     Indication: GENERAL ANAESTHESIA
     Dosage: SINGLE INDUCTION BOLUS
  3. PROPOFOL [Suspect]
     Indication: GENERAL ANAESTHESIA
  4. SUFENTANIL CITRATE [Suspect]
     Indication: GENERAL ANAESTHESIA
     Dosage: 1 DOSAGEFORM = 5-10 MCG EVERY 30-45 MIN
  5. AMOXICILLIN + CLAVULANATE POTASSIUM [Concomitant]

REACTIONS (1)
  - POTENTIATING DRUG INTERACTION [None]
